FAERS Safety Report 23048237 (Version 2)
Quarter: 2023Q4

REPORT INFORMATION
  Report Type: Spontaneous
  Country: US (occurrence: US)
  Receive Date: 20231010
  Receipt Date: 20231010
  Transmission Date: 20240110
  Serious: Yes (Hospitalization, Other)
  Sender: FDA-Public Use
  Company Number: US-ABBVIE-5431835

PATIENT
  Age: 79 Year
  Sex: Female
  Weight: 62.142 kg

DRUGS (3)
  1. REFRESH CLASSIC [Suspect]
     Active Substance: POLYVINYL ALCOHOL\POVIDONE
     Indication: Dry eye
     Dosage: 2-3 TIMES A DAY
     Route: 047
     Dates: end: 202310
  2. REFRESH DIGITAL [Concomitant]
     Active Substance: CARBOXYMETHYLCELLULOSE SODIUM\GLYCERIN\POLYSORBATE 80
     Indication: Dry eye
     Dates: start: 202309
  3. REFRESH DIGITAL PF [Concomitant]
     Active Substance: CARBOXYMETHYLCELLULOSE SODIUM\GLYCERIN\POLYSORBATE 80
     Indication: Dry eye
     Dates: start: 202309

REACTIONS (9)
  - Jejunal perforation [Recovering/Resolving]
  - Meibomian gland dysfunction [Recovering/Resolving]
  - Eye disorder [Recovering/Resolving]
  - Lacrimation decreased [Recovering/Resolving]
  - Dry skin [Recovering/Resolving]
  - Drug ineffective [Not Recovered/Not Resolved]
  - Impaired gastric emptying [Unknown]
  - Infection [Recovering/Resolving]
  - Eye discharge [Recovering/Resolving]

NARRATIVE: CASE EVENT DATE: 20221001
